FAERS Safety Report 6803026-3 (Version None)
Quarter: 2010Q2

REPORT INFORMATION
  Report Type: 
  Country: None (occurrence: None)
  Receive Date: 20100628
  Receipt Date: 20100517
  Transmission Date: 20101027
  Serious: Yes (Hospitalization)
  Sender: FDA-Public Use
  Company Number: DE-SANOFI-AVENTIS-2010SA009030

PATIENT
  Age: 59 Year
  Sex: Male
  Weight: 79 kg

DRUGS (18)
  1. AFLIBERCEPT [Suspect]
     Route: 042
     Dates: start: 20090902, end: 20090902
  2. AFLIBERCEPT [Suspect]
     Route: 042
     Dates: start: 20100203, end: 20100203
  3. OXALIPLATIN [Suspect]
     Route: 042
     Dates: start: 20090902, end: 20090902
  4. OXALIPLATIN [Suspect]
     Route: 042
     Dates: start: 20100203, end: 20100203
  5. FLUOROURACIL [Suspect]
     Route: 042
     Dates: start: 20090902, end: 20090902
  6. FLUOROURACIL [Suspect]
     Route: 042
     Dates: start: 20100203, end: 20100203
  7. LEUCOVORIN CALCIUM [Suspect]
     Route: 042
     Dates: start: 20090902, end: 20090902
  8. LEUCOVORIN CALCIUM [Suspect]
     Route: 042
     Dates: start: 20100203, end: 20100203
  9. ZOFRAN [Concomitant]
     Dates: start: 20090902
  10. ONDANSETRON [Concomitant]
     Dates: start: 20090916
  11. NOVALGIN [Concomitant]
     Dates: start: 20090930
  12. FORTECORTIN [Concomitant]
     Dates: start: 20091014
  13. PANTOZOL [Concomitant]
     Dates: start: 20091021
  14. BACLOFEN [Concomitant]
     Dates: start: 20091021
  15. STOMATOLOGICALS, MOUTH PREPARATIONS [Concomitant]
     Dates: start: 20091014
  16. CLEXANE [Concomitant]
     Dates: start: 20091209
  17. FAKTU [Concomitant]
     Dates: start: 20091228, end: 20100210
  18. RECTOGESIC [Concomitant]
     Dates: start: 20100120, end: 20100210

REACTIONS (2)
  - ANAL FISSURE [None]
  - ANAL FISTULA [None]
